FAERS Safety Report 18195485 (Version 6)
Quarter: 2020Q4

REPORT INFORMATION
  Report Type: Other
  Country: CZ (occurrence: CZ)
  Receive Date: 20200826
  Receipt Date: 20201103
  Transmission Date: 20210113
  Serious: Yes (Hospitalization)
  Sender: FDA-Public Use
  Company Number: CZ-ROCHE-2665133

PATIENT
  Age: 18 Year
  Sex: Male

DRUGS (27)
  1. METHYLPREDNISOLONE. [Concomitant]
     Active Substance: METHYLPREDNISOLONE
  2. NIACINAMIDE [Concomitant]
     Active Substance: NIACINAMIDE
  3. RITUXIMAB. [Suspect]
     Active Substance: RITUXIMAB
     Route: 041
     Dates: start: 201810
  4. MYCOPHENOLATE MOFETIL. [Suspect]
     Active Substance: MYCOPHENOLATE MOFETIL
     Indication: PEMPHIGUS
     Route: 065
     Dates: start: 2016
  5. TERIPARATIDE [Concomitant]
     Active Substance: TERIPARATIDE
     Indication: ADJUVANT THERAPY
     Route: 058
     Dates: start: 201605, end: 201805
  6. METHYLPREDNISOLONE. [Concomitant]
     Active Substance: METHYLPREDNISOLONE
  7. DOXYCYCLINE. [Concomitant]
     Active Substance: DOXYCYCLINE
  8. DOXYCYCLINE. [Concomitant]
     Active Substance: DOXYCYCLINE
  9. METHYLPREDNISOLONE. [Concomitant]
     Active Substance: METHYLPREDNISOLONE
  10. AZATHIOPRINE. [Concomitant]
     Active Substance: AZATHIOPRINE
     Dates: end: 201603
  11. RITUXIMAB. [Suspect]
     Active Substance: RITUXIMAB
     Route: 041
  12. PREDNISONE. [Concomitant]
     Active Substance: PREDNISONE
     Indication: PEMPHIGUS
  13. AZATHIOPRINE. [Concomitant]
     Active Substance: AZATHIOPRINE
     Indication: PEMPHIGUS
     Dosage: UNK
  14. RISEDRONATE [Concomitant]
     Active Substance: RISEDRONATE SODIUM
     Dosage: UNK
  15. METHYLPREDNISOLONE. [Concomitant]
     Active Substance: METHYLPREDNISOLONE
     Indication: PEMPHIGUS
     Dosage: UNK
     Dates: end: 201806
  16. PREDNISONE. [Concomitant]
     Active Substance: PREDNISONE
     Dates: start: 2016
  17. PREDNISONE. [Concomitant]
     Active Substance: PREDNISONE
     Dates: start: 201602
  18. SOLU-MEDROL [Concomitant]
     Active Substance: METHYLPREDNISOLONE SODIUM SUCCINATE
     Dosage: PULSE THERAPY
     Route: 042
  19. CYCLOPHOSPHAMIDE. [Concomitant]
     Active Substance: CYCLOPHOSPHAMIDE
     Indication: PEMPHIGUS
     Dosage: UNK
     Route: 042
     Dates: start: 201604, end: 201609
  20. PREDNISONE. [Concomitant]
     Active Substance: PREDNISONE
  21. CALCIUM [Concomitant]
     Active Substance: CALCIUM
     Indication: OSTEOPOROSIS
     Dosage: UNK
  22. UNDECYLENAMIDOPROPYL BETAINE [Concomitant]
  23. TERIPARATIDE [Concomitant]
     Active Substance: TERIPARATIDE
     Indication: ADJUVANT THERAPY
     Route: 058
     Dates: start: 201605, end: 201805
  24. RITUXIMAB. [Suspect]
     Active Substance: RITUXIMAB
     Indication: PEMPHIGUS
     Route: 041
     Dates: start: 201707
  25. RITUXIMAB. [Suspect]
     Active Substance: RITUXIMAB
     Route: 041
     Dates: start: 201804
  26. METHYLPREDNISOLONE. [Concomitant]
     Active Substance: METHYLPREDNISOLONE
  27. VITAMIN D3 [Concomitant]
     Active Substance: CHOLECALCIFEROL
     Dosage: 15 DROPS 3 TIMES A WEEK

REACTIONS (4)
  - Jaw cyst [Recovered/Resolved]
  - Impaired healing [Recovered/Resolved]
  - Intentional product use issue [Unknown]
  - Off label use [Unknown]

NARRATIVE: CASE EVENT DATE: 201801
